FAERS Safety Report 4906686-7 (Version None)
Quarter: 2006Q1

REPORT INFORMATION
  Report Type: 
  Country: None (occurrence: None)
  Receive Date: 20060206
  Receipt Date: 20060125
  Transmission Date: 20060701
  Serious: Yes (Other)
  Sender: FDA-Public Use
  Company Number: 221501

PATIENT
  Sex: Female

DRUGS (1)
  1. RITUXAN(RITUXIMAB) CONC FOR SOLUTION FOR INFUSION [Suspect]
     Indication: THROMBOTIC THROMBOCYTOPENIC PURPURA
     Dates: start: 20060122

REACTIONS (1)
  - HEPATIC ENZYME INCREASED [None]
